FAERS Safety Report 6434930-6 (Version None)
Quarter: 2009Q4

REPORT INFORMATION
  Report Type: 
  Country: None (occurrence: None)
  Receive Date: 20091109
  Receipt Date: 20091109
  Transmission Date: 20100525
  Serious: Yes (Other)
  Sender: FDA-Public Use
  Company Number: None

PATIENT
  Sex: Female
  Weight: 81.8 kg

DRUGS (1)
  1. SYNTHROID [Suspect]
     Indication: AUTOIMMUNE THYROIDITIS
     Dosage: .125 SYNTHROID BY ABBOTT LABORATORY 1 X PER DAY ORAL PILL
     Route: 048
     Dates: start: 19960101, end: 20080101

REACTIONS (3)
  - HYPERTHYROIDISM [None]
  - HYPOTHYROIDISM [None]
  - PRODUCT SUBSTITUTION ISSUE [None]
